FAERS Safety Report 7035506-2 (Version None)
Quarter: 2010Q4

REPORT INFORMATION
  Report Type: 
  Country: None (occurrence: None)
  Receive Date: 20101008
  Receipt Date: 20100928
  Transmission Date: 20110411
  Serious: Yes (Hospitalization, Other)
  Sender: FDA-Public Use
  Company Number: US-PFIZER INC-2010095822

PATIENT
  Sex: Male
  Weight: 136.05 kg

DRUGS (4)
  1. GEODON [Suspect]
     Indication: HALLUCINATION, AUDITORY
     Dosage: 240 MG, 1X/DAY
     Route: 048
     Dates: start: 20100527, end: 20100501
  2. GEODON [Suspect]
     Indication: INSOMNIA
  3. SEROQUEL [Suspect]
     Indication: HALLUCINATION, AUDITORY
     Dosage: 300 MG, 2X/DAY
     Route: 048
     Dates: start: 19960101, end: 20100527
  4. SEROQUEL [Suspect]
     Indication: INSOMNIA

REACTIONS (7)
  - ANKLE FRACTURE [None]
  - COGNITIVE DISORDER [None]
  - DYSTONIA [None]
  - GLOSSITIS [None]
  - PARAESTHESIA [None]
  - SWOLLEN TONGUE [None]
  - TONGUE DISORDER [None]
